FAERS Safety Report 7269744-0 (Version None)
Quarter: 2011Q1

REPORT INFORMATION
  Report Type: 
  Country: None (occurrence: None)
  Receive Date: 20110126
  Receipt Date: 20091112
  Transmission Date: 20110831
  Serious: Yes (Hospitalization, Other)
  Sender: FDA-Public Use
  Company Number: 2009AP004549

PATIENT
  Age: 79 Year
  Sex: Male

DRUGS (16)
  1. HYDROCHLOROTHIAZIDE [Suspect]
  2. CILAZAPRIL (CILAZAPRIL) [Concomitant]
  3. POLYETHYLENE GLYCOL [Suspect]
     Indication: COLONOSCOPY
     Dosage: 4 L;
  4. TIOTROPIUM (TIOTROPIUM) [Concomitant]
  5. CARBIDOPA (CARBIDOPA) [Concomitant]
  6. ACETAMINOPHEN [Concomitant]
  7. SOTALOL HYDROCHLORIDE [Suspect]
  8. TOLTERODINE TARTRATE [Concomitant]
  9. LEVODOPA (LEVODOPA) [Concomitant]
  10. ATORVASTATIN (ATORVASTATIN) [Concomitant]
  11. BUDESONIDE [Concomitant]
  12. NORTRIPTYLINE HCL [Suspect]
  13. FERROUS GLUCONATE (FERROUS GLUCONATE) [Concomitant]
  14. LEVOTHYROXINE SODIUM [Concomitant]
  15. OMEPRAZOLE [Concomitant]
  16. CLOPIDOGREL [Concomitant]

REACTIONS (7)
  - WEIGHT DECREASED [None]
  - HAEMORRHOIDS [None]
  - DEVICE MALFUNCTION [None]
  - HYPOKALAEMIA [None]
  - HYPOMAGNESAEMIA [None]
  - IRON DEFICIENCY ANAEMIA [None]
  - VENTRICULAR TACHYCARDIA [None]
